FAERS Safety Report 8977433 (Version 1)
Quarter: 2012Q4

REPORT INFORMATION
  Report Type: 
  Country: CA (occurrence: CA)
  Receive Date: 20121219
  Receipt Date: 20121219
  Transmission Date: 20130627
  Serious: Yes (Other)
  Sender: FDA-Public Use
  Company Number: CA-ELI_LILLY_AND_COMPANY-CA201212002272

PATIENT
  Age: 49 Year
  Sex: Female

DRUGS (8)
  1. CYMBALTA [Suspect]
     Indication: MAJOR DEPRESSION
     Dosage: UNK
  2. METFORMIN [Concomitant]
  3. GABAPENTIN [Concomitant]
  4. ELAVIL [Concomitant]
  5. DIAZEPAM [Concomitant]
  6. FLEXERIL [Concomitant]
  7. DILTIAZEM [Concomitant]
  8. ELTROXIN [Concomitant]

REACTIONS (2)
  - Hepatomegaly [Unknown]
  - Rash [Unknown]
